FAERS Safety Report 12319303 (Version 1)
Quarter: 2016Q2

REPORT INFORMATION
  Report Type: Spontaneous
  Country: US (occurrence: US)
  Receive Date: 20160429
  Receipt Date: 20160429
  Transmission Date: 20160815
  Serious: No
  Sender: FDA-Public Use
  Company Number: US-ROCHE-1574542

PATIENT
  Sex: Female

DRUGS (3)
  1. TAXOL [Concomitant]
     Active Substance: PACLITAXEL
     Indication: CERVIX CANCER METASTATIC
  2. TOPOTECAN [Concomitant]
     Active Substance: TOPOTECAN\TOPOTECAN HYDROCHLORIDE
     Indication: CERVIX CANCER METASTATIC
  3. AVASTIN [Suspect]
     Active Substance: BEVACIZUMAB
     Indication: CERVIX CANCER METASTATIC
     Route: 065

REACTIONS (2)
  - Dyspnoea [Recovered/Resolved]
  - Chest pain [Recovered/Resolved]
